FAERS Safety Report 7694511-3 (Version None)
Quarter: 2011Q3

REPORT INFORMATION
  Report Type: 
  Country: None (occurrence: None)
  Receive Date: 20110819
  Receipt Date: 20110812
  Transmission Date: 20111222
  Serious: Yes (Hospitalization)
  Sender: FDA-Public Use
  Company Number: PHEH2011US01476

PATIENT
  Sex: Female
  Weight: 86.168 kg

DRUGS (21)
  1. LISINOPRIL [Concomitant]
  2. AMBIEN [Concomitant]
  3. PROTONIX [Concomitant]
  4. PULMOZYME [Concomitant]
     Dates: start: 20110601
  5. SPIRIVA [Concomitant]
  6. ADVAIR DISKUS 100/50 [Concomitant]
  7. PREDNISONE [Concomitant]
  8. FLONASE [Concomitant]
  9. METFORMIN HCL [Concomitant]
  10. GLIMEPIRIDE [Concomitant]
  11. PROBIOTICS [Concomitant]
  12. LORTAB [Concomitant]
  13. AMLODIPINE [Concomitant]
  14. TOBI [Suspect]
     Indication: CYSTIC FIBROSIS
     Dosage: 300 MG, BID
     Dates: start: 20110601
  15. ALBUTEROL SULFATE AUTOHALER [Concomitant]
  16. DULCOLAX [Concomitant]
  17. VITAMIN K TAB [Concomitant]
  18. BUSPAR [Concomitant]
  19. SINGULAIR [Concomitant]
  20. PAXIL [Concomitant]
  21. MULTIVITAMINS AND D, E, FE, CA [Concomitant]

REACTIONS (1)
  - BRONCHITIS [None]
